FAERS Safety Report 9219199 (Version 1)
Quarter: 2013Q1

REPORT INFORMATION
  Report Type: Spontaneous
  Country: US (occurrence: None)
  Receive Date: 20120830
  Receipt Date: 20120830
  Transmission Date: 20140127
  Serious: Yes (Other)
  Sender: FDA-Public Use
  Company Number: PHHY2011US59512

PATIENT
  Age: 58 Year
  Sex: Male

DRUGS (1)
  1. SANDOSTATIN LAR DEPOT (OCTREOTIDE WITH POLY(D L-LACTIDE-CO-GLYCOLIDE)) SUSPENSION [Suspect]
     Indication: CARCINOID TUMOUR

REACTIONS (2)
  - Metastases to liver [None]
  - Metastases to heart [None]
